FAERS Safety Report 26139817 (Version 1)
Quarter: 2025Q4

REPORT INFORMATION
  Report Type: Spontaneous
  Country: US (occurrence: None)
  Receive Date: 20251208
  Receipt Date: 20251208
  Transmission Date: 20260118
  Serious: Yes (Other)
  Sender: FDA-CTU
  Company Number: None

PATIENT
  Age: 73 Year
  Sex: Female
  Weight: 81.65 kg

DRUGS (1)
  1. FLUOCINONIDE [Suspect]
     Active Substance: FLUOCINONIDE
     Indication: Psoriasis
     Dosage: OTHER STRENGTH : 0.05% UGM/SQ M;?FREQUENCY : TWICE A DAY;
     Route: 061
     Dates: start: 20251204, end: 20251205

REACTIONS (3)
  - Skin discolouration [None]
  - Application site discolouration [None]
  - Tanning [None]

NARRATIVE: CASE EVENT DATE: 20251204
